FAERS Safety Report 8290132-2 (Version None)
Quarter: 2012Q2

REPORT INFORMATION
  Report Type: 
  Country: None (occurrence: None)
  Receive Date: 20120417
  Receipt Date: 20120413
  Transmission Date: 20120825
  Serious: Yes (Death, Other)
  Sender: FDA-Public Use
  Company Number: PHHY2012BR032063

PATIENT
  Sex: Female

DRUGS (1)
  1. DIOVAN [Suspect]
     Indication: HYPERTENSION
     Dosage: 1 DF, DAILY
     Dates: start: 20020101

REACTIONS (4)
  - PNEUMONIA [None]
  - LOWER LIMB FRACTURE [None]
  - FALL [None]
  - MALAISE [None]
